FAERS Safety Report 16674926 (Version 3)
Quarter: 2021Q1

REPORT INFORMATION
  Report Type: Spontaneous
  Country: JP (occurrence: JP)
  Receive Date: 20190806
  Receipt Date: 20210125
  Transmission Date: 20210419
  Serious: Yes (Hospitalization)
  Sender: FDA-Public Use
  Company Number: JP-PFIZER INC-2019329665

PATIENT
  Age: 35 Year
  Sex: Male

DRUGS (18)
  1. SENIRAN [Suspect]
     Active Substance: BROMAZEPAM
     Dosage: 542 MG
     Route: 048
  2. LAMOTRIGINE. [Suspect]
     Active Substance: LAMOTRIGINE
     Dosage: 2800 MG
     Route: 048
  3. TRIAZOLAM. [Suspect]
     Active Substance: TRIAZOLAM
     Dosage: 0.5 MG, 1X/DAY, BEFORE BEDTIME
  4. EFFEXOR [Suspect]
     Active Substance: VENLAFAXINE HYDROCHLORIDE
     Dosage: 225 MG, 1X/DAY, AFTER DINNER
  5. TRAZODONE HYDROCHLORIDE. [Suspect]
     Active Substance: TRAZODONE HYDROCHLORIDE
     Dosage: 50 MG, 1X/DAY, BEFORE BEDTIME
     Route: 048
  6. TRIAZOLAM. [Suspect]
     Active Substance: TRIAZOLAM
     Dosage: 7.5 MG
     Route: 048
  7. SENIRAN [Suspect]
     Active Substance: BROMAZEPAM
     Dosage: 5 MG, 2X/DAY, AFTER BREAKFAST AND AFTER DINNER
  8. IRSOGLADINE MALEATE [Suspect]
     Active Substance: IRSOGLADINE MALEATE
     Dosage: 4 MG, 1X/DAY, BEFORE BEDTIME
  9. MAGMITT [Concomitant]
     Active Substance: MAGNESIUM OXIDE
     Dosage: 500 MG, 3X/DAY
  10. SENNOSIDE SEIKO [Concomitant]
     Dosage: 24 MG, 1X/DAY BEFORE GOING TO BED
  11. EFFEXOR [Interacting]
     Active Substance: VENLAFAXINE HYDROCHLORIDE
     Dosage: 13350 MG, SINGLE
     Route: 048
  12. TRAZODONE HYDROCHLORIDE. [Suspect]
     Active Substance: TRAZODONE HYDROCHLORIDE
     Dosage: 100 MG
     Route: 048
  13. ABILIFY [Interacting]
     Active Substance: ARIPIPRAZOLE
     Dosage: 30 MG
     Route: 048
  14. LAMOTRIGINE. [Suspect]
     Active Substance: LAMOTRIGINE
     Dosage: 300 MG, 1X/DAY, AFTER BREAKFAST
  15. ABILIFY [Interacting]
     Active Substance: ARIPIPRAZOLE
     Dosage: 3 MG, 1X/DAY, AFTER BREAKFAST
  16. IRSOGLADINE MALEATE [Suspect]
     Active Substance: IRSOGLADINE MALEATE
     Dosage: 8 MG
     Route: 048
  17. LAMICTAL [Suspect]
     Active Substance: LAMOTRIGINE
     Dosage: UNK
  18. LAMICTAL [Suspect]
     Active Substance: LAMOTRIGINE
     Dosage: 1400 MG
     Route: 048

REACTIONS (8)
  - Intentional overdose [Recovering/Resolving]
  - Blood glucose decreased [Recovering/Resolving]
  - Blood creatine phosphokinase increased [Recovering/Resolving]
  - Potentiating drug interaction [Recovering/Resolving]
  - Suicide attempt [Unknown]
  - Toxicity to various agents [Recovering/Resolving]
  - Depressed level of consciousness [Recovering/Resolving]
  - Hepatic enzyme increased [Recovering/Resolving]
